FAERS Safety Report 20525456 (Version 6)
Quarter: 2023Q2

REPORT INFORMATION
  Report Type: Report from Study
  Country: EG (occurrence: EG)
  Receive Date: 20220228
  Receipt Date: 20230607
  Transmission Date: 20230721
  Serious: Yes (Death, Other)
  Sender: FDA-Public Use
  Company Number: EG-NOVARTISPH-NVSC2022EG043324

PATIENT
  Age: 56 Year
  Sex: Female

DRUGS (4)
  1. AFINITOR [Suspect]
     Active Substance: EVEROLIMUS
     Indication: Breast cancer metastatic
     Dosage: 5 MG, QD
     Route: 048
     Dates: start: 202106, end: 202112
  2. AFINITOR [Suspect]
     Active Substance: EVEROLIMUS
     Indication: Metastases to ovary
  3. AFINITOR [Suspect]
     Active Substance: EVEROLIMUS
     Indication: Metastases to adrenals
  4. KISQALI [Suspect]
     Active Substance: RIBOCICLIB
     Indication: Breast cancer metastatic
     Dosage: 200 MG
     Route: 048
     Dates: start: 202202

REACTIONS (14)
  - Death [Fatal]
  - Diabetes mellitus [Recovering/Resolving]
  - Renal impairment [Recovered/Resolved]
  - Neoplasm progression [Unknown]
  - Metastases to peritoneum [Unknown]
  - Metastases to lymph nodes [Unknown]
  - Metastases to adrenals [Unknown]
  - Metastases to stomach [Unknown]
  - COVID-19 [Recovered/Resolved]
  - Drug ineffective [Recovered/Resolved]
  - Haemoglobin decreased [Unknown]
  - Flushing [Recovered/Resolved]
  - Fatigue [Recovered/Resolved]
  - Product use issue [Recovered/Resolved]

NARRATIVE: CASE EVENT DATE: 20210601
